FAERS Safety Report 8955027 (Version 1)
Quarter: 2012Q4

REPORT INFORMATION
  Report Type: 
  Country: CA (occurrence: CA)
  Receive Date: 20121207
  Receipt Date: 20121207
  Transmission Date: 20130627
  Serious: Yes (Other)
  Sender: FDA-Public Use
  Company Number: CA-B.I. PHARMACEUTICALS,INC./RIDGEFIELD-2012-CN-02476CN

PATIENT
  Age: 76 Year
  Sex: Male

DRUGS (2)
  1. PRADAX [Suspect]
     Dosage: 220 mg
  2. PRADAX [Suspect]
     Dosage: 110 mg

REACTIONS (2)
  - Cerebrovascular accident [Unknown]
  - Gastrointestinal haemorrhage [Unknown]
